FAERS Safety Report 8540854 (Version 2)
Quarter: 2012Q4

REPORT INFORMATION
  Report Type: 
  Country: US (occurrence: US)
  Receive Date: 20120502
  Receipt Date: 20120830
  Transmission Date: 20130627
  Serious: Yes (Hospitalization)
  Sender: FDA-Public Use
  Company Number: US-BAYER-2012-041845

PATIENT
  Age: 23 Year
  Sex: Female
  Weight: 63 kg

DRUGS (6)
  1. YAZ [Suspect]
     Indication: CONTRACEPTION
     Dosage: UNK
     Dates: start: 20080416, end: 200806
  2. YAZ [Suspect]
     Indication: MENSTRUATION IRREGULAR
  3. YAZ [Suspect]
     Indication: PREMENSTRUAL SYNDROME
  4. LUTERA-28 [Concomitant]
     Dosage: UNK
  5. ALLEGRA [Concomitant]
     Indication: MULTIPLE ALLERGIES
  6. PRILOSEC [Concomitant]
     Indication: ABDOMINAL PAIN

REACTIONS (3)
  - Cholelithiasis [None]
  - Injury [None]
  - Pain [None]
